FAERS Safety Report 9293074 (Version 1)
Quarter: 2013Q2

REPORT INFORMATION
  Report Type: Spontaneous
  Country: US (occurrence: None)
  Receive Date: 20130515
  Receipt Date: 20130515
  Transmission Date: 20140414
  Serious: Yes (Hospitalization)
  Sender: FDA-Public Use
  Company Number: None

PATIENT
  Age: 60 Year
  Sex: Female
  Weight: 131.18 kg

DRUGS (2)
  1. CARBOPLATIN [Suspect]
  2. PACLITAXEL (TAXOL) [Suspect]

REACTIONS (6)
  - Diarrhoea [None]
  - Hyperhidrosis [None]
  - Chills [None]
  - Malaise [None]
  - Urinary tract infection [None]
  - Wound infection staphylococcal [None]
